FAERS Safety Report 7661393-5 (Version None)
Quarter: 2011Q3

REPORT INFORMATION
  Report Type: 
  Country: None (occurrence: None)
  Receive Date: 20110805
  Receipt Date: 20101001
  Transmission Date: 20111222
  Serious: No
  Sender: FDA-Public Use
  Company Number: US-ABBOTT-10P-163-0676537-00

PATIENT
  Age: 74 Year
  Sex: Male
  Weight: 90.8 kg

DRUGS (4)
  1. NIASPAN [Suspect]
     Indication: HIGH DENSITY LIPOPROTEIN DECREASED
     Dates: start: 20100924
  2. PLAVIX [Concomitant]
     Indication: CARDIAC DISORDER
     Dates: start: 20100401
  3. NAPROXEN (ALEVE) [Concomitant]
     Indication: PRODUCT USED FOR UNKNOWN INDICATION
     Dosage: NIGHTLY
  4. ASPIRIN [Concomitant]
     Indication: CARDIAC DISORDER
     Dosage: MORNING
     Dates: start: 20100401

REACTIONS (2)
  - PRURITUS [None]
  - SKIN BURNING SENSATION [None]
